FAERS Safety Report 9298932 (Version 1)
Quarter: 2013Q2

REPORT INFORMATION
  Report Type: Spontaneous
  Country: US (occurrence: US)
  Receive Date: 20130520
  Receipt Date: 20130520
  Transmission Date: 20140414
  Serious: No
  Sender: FDA-Public Use
  Company Number: US-SANOFI-AVENTIS-2012SA084263

PATIENT
  Age: 53 Year
  Sex: Female

DRUGS (1)
  1. APIDRA [Suspect]
     Indication: TYPE 1 DIABETES MELLITUS
     Dosage: PRODUCT START DATE: ABOUT 24 YEARS AGO?DOSE: ON SLIDING SCALE 5-7 TIMES DAILY
     Route: 058
     Dates: end: 2010

REACTIONS (1)
  - Injection site scar [Unknown]
